FAERS Safety Report 8817777 (Version 1)
Quarter: 2012Q4

REPORT INFORMATION
  Report Type: 
  Country: FR (occurrence: FR)
  Receive Date: 20121001
  Receipt Date: 20121001
  Transmission Date: 20130627
  Serious: Yes (Other)
  Sender: FDA-Public Use
  Company Number: PHHY2012FR084947

PATIENT
  Age: 87 Year
  Sex: Male

DRUGS (2)
  1. VOLTARENE [Suspect]
     Indication: BACK PAIN
     Dosage: 1 DF, UNK
     Dates: start: 20120924
  2. CRESTOR [Concomitant]
     Indication: HYPERCHOLESTEROLAEMIA

REACTIONS (2)
  - Dysstasia [Unknown]
  - Vertigo [Unknown]
